FAERS Safety Report 18151629 (Version 1)
Quarter: 2020Q3

REPORT INFORMATION
  Report Type: Spontaneous
  Country: US (occurrence: US)
  Receive Date: 20200814
  Receipt Date: 20200814
  Transmission Date: 20201103
  Serious: Yes (Other)
  Sender: FDA-Public Use
  Company Number: US-PFIZER INC-2020310725

PATIENT
  Age: 71 Year
  Sex: Female
  Weight: 60.78 kg

DRUGS (1)
  1. PHENYTOIN SODIUM. [Suspect]
     Active Substance: PHENYTOIN SODIUM
     Dosage: UNK

REACTIONS (3)
  - Brain neoplasm [Unknown]
  - Drug ineffective [Unknown]
  - Blood prolactin increased [Unknown]
